FAERS Safety Report 9691944 (Version 3)
Quarter: 2014Q2

REPORT INFORMATION
  Report Type: Spontaneous
  Country: BR (occurrence: BR)
  Receive Date: 20131118
  Receipt Date: 20140516
  Transmission Date: 20141212
  Serious: Yes (Other)
  Sender: FDA-Public Use
  Company Number: BR-PFIZER INC-2013317415

PATIENT
  Age: 41 Year
  Sex: Female
  Weight: 52 kg

DRUGS (2)
  1. CHAMPIX [Suspect]
     Indication: SMOKING CESSATION THERAPY
     Dosage: 1 MG (ONE TABLET), DAILY
     Route: 048
     Dates: start: 20131102, end: 201311
  2. CHAMPIX [Suspect]
     Dosage: 2 DF
     Dates: start: 201311

REACTIONS (9)
  - Depression [Unknown]
  - Activities of daily living impaired [Not Recovered/Not Resolved]
  - Decreased interest [Not Recovered/Not Resolved]
  - Intentional product misuse [Unknown]
  - Malaise [Unknown]
  - Irritability [Not Recovered/Not Resolved]
  - Asthenia [Unknown]
  - Headache [Unknown]
  - Weight increased [Not Recovered/Not Resolved]
